FAERS Safety Report 23698236 (Version 1)
Quarter: 2024Q2

REPORT INFORMATION
  Report Type: Spontaneous
  Country: VN (occurrence: VN)
  Receive Date: 20240402
  Receipt Date: 20240402
  Transmission Date: 20240716
  Serious: Yes (Other)
  Sender: FDA-Public Use
  Company Number: VN-002147023-NVSC2024VN068861

PATIENT
  Age: 47 Year
  Sex: Female

DRUGS (6)
  1. ANASTROZOLE [Suspect]
     Active Substance: ANASTROZOLE
     Indication: Disease progression
     Dosage: UNK
     Route: 065
  2. FULVESTRANT [Suspect]
     Active Substance: FULVESTRANT
     Indication: Breast cancer
     Dosage: UNK
     Route: 065
  3. PACLITAXEL [Suspect]
     Active Substance: PACLITAXEL
     Indication: Breast cancer
     Dosage: UNK
     Route: 065
     Dates: start: 2017, end: 201804
  4. RIBOCICLIB [Suspect]
     Active Substance: RIBOCICLIB
     Indication: Disease progression
     Dosage: UNK
     Route: 065
  5. CARBOPLATIN [Concomitant]
     Active Substance: CARBOPLATIN
     Indication: Breast cancer
     Dosage: UNK
     Route: 065
     Dates: start: 2017
  6. EXEMESTANE [Concomitant]
     Active Substance: EXEMESTANE
     Indication: Disease progression
     Dosage: UNK
     Route: 065

REACTIONS (5)
  - Breast cancer recurrent [Unknown]
  - Drug hypersensitivity [Unknown]
  - Lymphadenopathy mediastinal [Unknown]
  - Pleural effusion [Not Recovered/Not Resolved]
  - Lymphadenopathy [Unknown]
